FAERS Safety Report 6794584-6 (Version None)
Quarter: 2010Q2

REPORT INFORMATION
  Report Type: 
  Country: None (occurrence: None)
  Receive Date: 20100625
  Receipt Date: 20100614
  Transmission Date: 20101027
  Serious: Yes (Other)
  Sender: FDA-Public Use
  Company Number: CA-JNJFOC-20100605175

PATIENT
  Sex: Female
  Weight: 46 kg

DRUGS (1)
  1. REMICADE [Suspect]
     Indication: CROHN'S DISEASE
     Dosage: ONCE, EVERY 5 TO 6 WEEKS
     Route: 042

REACTIONS (5)
  - ALOPECIA [None]
  - ARTHRALGIA [None]
  - CYST [None]
  - GINGIVITIS [None]
  - PSORIASIS [None]
